FAERS Safety Report 16047757 (Version 3)
Quarter: 2019Q2

REPORT INFORMATION
  Report Type: Spontaneous
  Country: PL (occurrence: PL)
  Receive Date: 20190307
  Receipt Date: 20190404
  Transmission Date: 20190711
  Serious: Yes (Hospitalization)
  Sender: FDA-Public Use
  Company Number: PL-MYLANLABS-2019M1020495

PATIENT
  Age: 70 Year
  Sex: Male

DRUGS (22)
  1. DABIGATRAN [Concomitant]
     Active Substance: DABIGATRAN
     Dosage: 150 MILLIGRAM, BID (2 X 150 MG )
  2. METFORMIN [Concomitant]
     Active Substance: METFORMIN HYDROCHLORIDE
     Indication: SOMATIC SYMPTOM DISORDER
     Dosage: 2000 MILLIGRAM, QD (2X 1000 MG)
     Route: 065
  3. METFORMIN [Concomitant]
     Active Substance: METFORMIN HYDROCHLORIDE
     Dosage: 1000 MILLIGRAM, BID
  4. DULOXETINE. [Interacting]
     Active Substance: DULOXETINE
     Dosage: 90 MILLIGRAM, QD(DOSE INCREASED)
     Route: 065
  5. DABIGATRAN [Concomitant]
     Active Substance: DABIGATRAN
     Indication: SOMATIC SYMPTOM DISORDER
     Dosage: 300 MILLIGRAM, QD (2 X 150 MG)
     Route: 065
  6. METOPROLOL. [Suspect]
     Active Substance: METOPROLOL
     Indication: PRODUCT USED FOR UNKNOWN INDICATION
     Dosage: 100 MILLIGRAM, QD (2X 50 MG)
  7. METOPROLOL. [Interacting]
     Active Substance: METOPROLOL
     Dosage: 50 MILLIGRAM, BID (2X 50 MG )
  8. QUETIAPINE. [Interacting]
     Active Substance: QUETIAPINE
     Indication: INITIAL INSOMNIA
  9. CIPROFLOXACIN. [Interacting]
     Active Substance: CIPROFLOXACIN
     Dosage: 500 MILLIGRAM, BID
     Route: 048
  10. METOPROLOL. [Interacting]
     Active Substance: METOPROLOL
     Indication: SOMATIC SYMPTOM DISORDER
     Dosage: 25 MILLIGRAM(1 X 25 MG,DOSE REDUCED)
     Route: 065
  11. QUETIAPINE. [Interacting]
     Active Substance: QUETIAPINE
     Indication: AFFECTIVE DISORDER
  12. CIPROFLOXACIN. [Interacting]
     Active Substance: CIPROFLOXACIN
     Indication: PROSTATITIS
     Dosage: 500 MILLIGRAM, QD (500 MG DAILY)
     Route: 048
  13. TAMSULOSIN [Concomitant]
     Active Substance: TAMSULOSIN
     Indication: SOMATIC SYMPTOM DISORDER
  14. DULOXETINE. [Interacting]
     Active Substance: DULOXETINE
     Indication: DIABETIC NEUROPATHY
     Dosage: 60 MILLIGRAM, QD(TAKEN IN THE MORNING)
     Route: 065
  15. QUETIAPINE. [Interacting]
     Active Substance: QUETIAPINE
     Indication: DEPRESSION
     Dosage: 50 MILLIGRAM, QD (BEFORE BEDTIME)
     Route: 065
  16. QUETIAPINE. [Interacting]
     Active Substance: QUETIAPINE
     Indication: DEPRESSED MOOD
  17. QUETIAPINE. [Interacting]
     Active Substance: QUETIAPINE
     Indication: ANHEDONIA
  18. CIPROFLOXACIN. [Interacting]
     Active Substance: CIPROFLOXACIN
     Indication: URETHRITIS
     Dosage: 1000 MILLIGRAM, QD (2 X 500 MG DAILY)
     Route: 048
  19. ALPHA LIPOIC ACID [Concomitant]
     Active Substance: .ALPHA.-LIPOIC ACID
     Indication: SOMATIC SYMPTOM DISORDER
     Dosage: 600 MILLIGRAM, QD (1X 600 MG)
     Route: 065
  20. DIGOXIN. [Concomitant]
     Active Substance: DIGOXIN
     Indication: SOMATIC SYMPTOM DISORDER
     Dosage: 0.1 MILLIGRAM, QD (1X 0.1 MG)
     Route: 065
  21. QUETIAPINE. [Interacting]
     Active Substance: QUETIAPINE
     Indication: AFFECTIVE DISORDER
  22. TAMSULOSIN [Concomitant]
     Active Substance: TAMSULOSIN
     Indication: PRODUCT USED FOR UNKNOWN INDICATION
     Dosage: 0.4 MILLIGRAM, QD (1X 0.4 MG)
     Route: 065

REACTIONS (12)
  - Bradycardia [Recovered/Resolved]
  - Nausea [Recovered/Resolved]
  - Tremor [Recovered/Resolved]
  - Drug interaction [Recovered/Resolved]
  - Diplopia [Recovered/Resolved]
  - Pain [Recovered/Resolved]
  - Anxiety [Recovered/Resolved]
  - Dizziness [Recovered/Resolved]
  - Yawning [Recovered/Resolved]
  - Headache [Recovered/Resolved]
  - Urinary retention [Recovered/Resolved]
  - Syncope [Recovered/Resolved]
